FAERS Safety Report 6532553-1 (Version None)
Quarter: 2010Q1

REPORT INFORMATION
  Report Type: 
  Country: None (occurrence: None)
  Receive Date: 20100104
  Receipt Date: 20091212
  Transmission Date: 20100710
  Serious: Yes (Other)
  Sender: FDA-Public Use
  Company Number: AEUSA200900330

PATIENT
  Sex: Female

DRUGS (3)
  1. GAMUNEX [Suspect]
     Indication: SICKLE CELL ANAEMIA WITH CRISIS
     Dosage: 5.7 GM; IV
     Route: 042
  2. ALBUTEROL /00139502/ [Concomitant]
  3. I.V. SOLUTIONS [Concomitant]

REACTIONS (3)
  - ANAEMIA [None]
  - BLOOD BILIRUBIN INCREASED [None]
  - HYPOXIA [None]
